FAERS Safety Report 7048553-1 (Version None)
Quarter: 2010Q4

REPORT INFORMATION
  Report Type: 
  Country: None (occurrence: None)
  Receive Date: 20101008
  Receipt Date: 20100930
  Transmission Date: 20110411
  Serious: Yes (Other)
  Sender: FDA-Public Use
  Company Number: 2010US004052

PATIENT
  Age: 81 Year
  Sex: Female

DRUGS (8)
  1. LEXISCAN [Suspect]
     Indication: SCAN MYOCARDIAL PERFUSION
     Dosage: 0.4 MG/5 ML OVER 10 SECONDS, IV BOLUS
     Route: 040
     Dates: start: 20100928, end: 20100928
  2. PLAVIX [Concomitant]
  3. NIFEDIPINE [Concomitant]
  4. ARICEPT [Concomitant]
  5. PRAVACHOL [Concomitant]
  6. LISINOPRIL [Concomitant]
  7. TOPOL XL (METOPROLOL SUCCINATE) [Concomitant]
  8. VITAMIN D (COLECALICIFEROL) [Concomitant]

REACTIONS (1)
  - MENTAL STATUS CHANGES [None]
